FAERS Safety Report 19092199 (Version 2)
Quarter: 2021Q2

REPORT INFORMATION
  Report Type: Other
  Country: JP (occurrence: JP)
  Receive Date: 20210405
  Receipt Date: 20210427
  Transmission Date: 20210717
  Serious: Yes (Death, Hospitalization, Other)
  Sender: FDA-Public Use
  Company Number: JP-ROCHE-2761665

PATIENT
  Age: 48 Year
  Sex: Male
  Weight: 42 kg

DRUGS (14)
  1. NEORAL [Suspect]
     Active Substance: CYCLOSPORINE
     Indication: PROPHYLAXIS AGAINST TRANSPLANT REJECTION
     Route: 048
     Dates: start: 200603
  2. CELLCEPT [Suspect]
     Active Substance: MYCOPHENOLATE MOFETIL\MYCOPHENOLATE MOFETIL HYDROCHLORIDE
     Indication: PROPHYLAXIS AGAINST TRANSPLANT REJECTION
     Route: 048
     Dates: start: 200603, end: 20191115
  3. CELLCEPT [Suspect]
     Active Substance: MYCOPHENOLATE MOFETIL\MYCOPHENOLATE MOFETIL HYDROCHLORIDE
     Route: 048
     Dates: end: 20191129
  4. MEDROL [Suspect]
     Active Substance: METHYLPREDNISOLONE
     Indication: PROPHYLAXIS AGAINST TRANSPLANT REJECTION
     Route: 048
     Dates: start: 200603
  5. NEORAL [Suspect]
     Active Substance: CYCLOSPORINE
     Route: 048
     Dates: end: 20191129
  6. NEXIUM [Concomitant]
     Active Substance: ESOMEPRAZOLE MAGNESIUM
     Dosage: DOSAGE IS UNCERTAIN.
     Route: 065
  7. AZELNIDIPINE [Concomitant]
     Active Substance: AZELNIDIPINE
     Dosage: DOSAGE IS UNCERTAIN.
     Route: 065
  8. ATORVASTATIN [Concomitant]
     Active Substance: ATORVASTATIN
     Dosage: DOSAGE IS UNCERTAIN.
     Route: 065
  9. LUPRAC [Concomitant]
     Active Substance: TORSEMIDE
     Dosage: DOSAGE IS UNCERTAIN.
     Route: 065
  10. AZOSEMIDE [Concomitant]
     Active Substance: AZOSEMIDE
     Dosage: DOSAGE IS UNCERTAIN.
     Route: 065
  11. SODIUM BICARBONATE. [Concomitant]
     Active Substance: SODIUM BICARBONATE
     Dosage: DOSAGE IS UNCERTAIN.
     Route: 065
  12. FEBURIC [Concomitant]
     Active Substance: FEBUXOSTAT
     Dosage: DOSAGE IS UNCERTAIN.
     Route: 065
  13. DOXAZOSIN [Concomitant]
     Active Substance: DOXAZOSIN MESYLATE
     Dosage: DOSAGE IS UNCERTAIN.
     Route: 065
  14. FERROUS SULFATE. [Concomitant]
     Active Substance: FERROUS SULFATE
     Dosage: DOSAGE IS UNCERTAIN.
     Route: 065

REACTIONS (4)
  - Renal impairment [Not Recovered/Not Resolved]
  - Hypoglycaemic encephalopathy [Fatal]
  - Post transplant lymphoproliferative disorder [Recovering/Resolving]
  - Cytomegalovirus enterocolitis [Recovered/Resolved]

NARRATIVE: CASE EVENT DATE: 201910
